FAERS Safety Report 6904480-9 (Version None)
Quarter: 2010Q3

REPORT INFORMATION
  Report Type: 
  Country: None (occurrence: None)
  Receive Date: 20100804
  Receipt Date: 20090523
  Transmission Date: 20110219
  Serious: No
  Sender: FDA-Public Use
  Company Number: US-PFIZER INC-2009219270

PATIENT
  Sex: Female
  Weight: 61.234 kg

DRUGS (11)
  1. LYRICA [Suspect]
     Indication: FIBROMYALGIA
     Dosage: UNK
     Dates: start: 20090101
  2. LYRICA [Suspect]
     Indication: ARTHRITIS
  3. CYMBALTA [Suspect]
     Indication: FIBROMYALGIA
     Dates: start: 20090101
  4. CYMBALTA [Suspect]
     Indication: ARTHRITIS
  5. PRIMIDONE [Concomitant]
     Dosage: UNK
  6. SIMVASTATIN [Concomitant]
     Dosage: UNK
  7. HEPAGRISEVIT FORTE-N TABLET [Concomitant]
     Dosage: UNK
  8. LIDODERM [Concomitant]
     Dosage: UNK
  9. ALENDRONATE SODIUM [Concomitant]
     Dosage: UNK
  10. CO-Q-10 [Concomitant]
     Dosage: UNK
  11. ACETYLSALICYLIC ACID [Concomitant]
     Dosage: UNK

REACTIONS (1)
  - DIARRHOEA [None]
